FAERS Safety Report 7611996-9 (Version None)
Quarter: 2011Q3

REPORT INFORMATION
  Report Type: 
  Country: None (occurrence: None)
  Receive Date: 20110715
  Receipt Date: 20110707
  Transmission Date: 20111222
  Serious: Yes (Other)
  Sender: FDA-Public Use
  Company Number: US-ELI_LILLY_AND_COMPANY-US201107002358

PATIENT
  Sex: Female

DRUGS (3)
  1. BEVACIZUMAB [Concomitant]
     Indication: OVARIAN CANCER RECURRENT
     Dosage: 10 MG/KG, INFUSED OVER 90 MINUTES ON DAYS 1 AND 15 OF 28-DAY CYCLES
  2. OXALIPLATIN [Concomitant]
     Indication: OVARIAN CANCER RECURRENT
     Dosage: 65 MG/M2, INFUSED OVER 120 MINUTES ON DAY 1 AND 15 OF 28-DAY CYCLES
  3. GEMCITABINE HYDROCHLORIDE [Suspect]
     Indication: OVARIAN CANCER RECURRENT
     Dosage: 1000 MG/M2, INFUSED OVER 30 MINUTES ON DAYS 1 AND 15 OF 28-DAY CYCLES

REACTIONS (1)
  - HYPERSENSITIVITY [None]
